FAERS Safety Report 6650149-8 (Version None)
Quarter: 2010Q1

REPORT INFORMATION
  Report Type: 
  Country: None (occurrence: None)
  Receive Date: 20100325
  Receipt Date: 20100317
  Transmission Date: 20100710
  Serious: Yes (Other)
  Sender: FDA-Public Use
  Company Number: US-SANOFI-AVENTIS-2010SA016401

PATIENT
  Age: 75 Year
  Sex: Female

DRUGS (1)
  1. LANTUS [Suspect]
     Indication: DIABETES MELLITUS
     Dosage: PATIENT ON LANTUS SOLOSTAR SINCE 2007 DOSE:18 UNIT(S)
     Route: 058
     Dates: start: 20040101

REACTIONS (1)
  - TRANSIENT ISCHAEMIC ATTACK [None]
